FAERS Safety Report 10168701 (Version 1)
Quarter: 2014Q2

REPORT INFORMATION
  Report Type: Spontaneous
  Country: US (occurrence: None)
  Receive Date: 20140512
  Receipt Date: 20140512
  Transmission Date: 20141212
  Serious: Yes (Other)
  Sender: FDA-Public Use
  Company Number: None

PATIENT
  Age: 20 Year
  Sex: Male
  Weight: 63.5 kg

DRUGS (2)
  1. MIRVASO [Suspect]
     Indication: ROSACEA
  2. MIRVASO [Suspect]

REACTIONS (2)
  - Flushing [None]
  - Erythema [None]
